FAERS Safety Report 21514604 (Version 2)
Quarter: 2022Q4

REPORT INFORMATION
  Report Type: Spontaneous
  Country: SE (occurrence: SE)
  Receive Date: 20221027
  Receipt Date: 20221129
  Transmission Date: 20230113
  Serious: Yes (Hospitalization, Other)
  Sender: FDA-Public Use
  Company Number: SE-Accord-280992

PATIENT
  Age: 58 Year
  Sex: Female

DRUGS (13)
  1. OLANZAPINE [Suspect]
     Active Substance: OLANZAPINE
     Indication: Product used for unknown indication
     Dosage: 15 MG, UNKNOWN
     Route: 065
  2. OLANZAPINE [Suspect]
     Active Substance: OLANZAPINE
     Dosage: 10 MG, UNKNOWN
     Route: 065
     Dates: end: 202111
  3. LITHIUM SULFATE [Suspect]
     Active Substance: LITHIUM SULFATE
     Indication: Product used for unknown indication
     Dosage: 0.6, UNK
     Route: 065
  4. LITHIUM SULFATE [Suspect]
     Active Substance: LITHIUM SULFATE
     Dosage: 3, UNK
     Route: 065
  5. PFIZER-BIONTECH COVID-19 VACCINE [Suspect]
     Active Substance: TOZINAMERAN
     Indication: Product used for unknown indication
     Dosage: 1 DOSAGE FORM, SINGLE
     Route: 065
     Dates: start: 2021, end: 2021
  6. PFIZER-BIONTECH COVID-19 VACCINE [Suspect]
     Active Substance: TOZINAMERAN
     Dosage: 1 DOSAGE FORM, SINGLE
     Route: 065
     Dates: start: 2021, end: 2021
  7. PFIZER-BIONTECH COVID-19 VACCINE [Suspect]
     Active Substance: TOZINAMERAN
     Dosage: 1 DOSAGE FORM, SINGLE
     Route: 065
     Dates: start: 202201, end: 202201
  8. CLOZAPINE [Suspect]
     Active Substance: CLOZAPINE
     Indication: Product used for unknown indication
     Dosage: 400 MG, UNKNOWN
     Route: 065
     Dates: start: 2007
  9. CLOZAPINE [Suspect]
     Active Substance: CLOZAPINE
     Dosage: 375 MG, UNKNOWN
     Route: 065
     Dates: start: 202204
  10. CLOZAPINE [Suspect]
     Active Substance: CLOZAPINE
     Dosage: 300 MG, UNKNOWN
     Route: 065
     Dates: start: 202208
  11. CLOZAPINE [Suspect]
     Active Substance: CLOZAPINE
     Dosage: 250 MG, UNKNOWN
     Route: 065
  12. VALPROIC ACID [Suspect]
     Active Substance: VALPROIC ACID
     Indication: Product used for unknown indication
     Dosage: 1200 MG, UNKNOWN
     Route: 065
     Dates: start: 2011
  13. VALPROIC ACID [Suspect]
     Active Substance: VALPROIC ACID
     Dosage: 1500 MG, UNKNOWN
     Route: 065

REACTIONS (3)
  - Petit mal epilepsy [Unknown]
  - Seizure [Unknown]
  - Drug level increased [Unknown]

NARRATIVE: CASE EVENT DATE: 20210301
